FAERS Safety Report 24054155 (Version 2)
Quarter: 2024Q3

REPORT INFORMATION
  Report Type: Spontaneous
  Country: US (occurrence: US)
  Receive Date: 20240705
  Receipt Date: 20240904
  Transmission Date: 20241016
  Serious: No
  Sender: ROCHE
  Company Number: US-ROCHE-10000006502

PATIENT
  Age: 49 Year
  Sex: Female
  Weight: 94.35 kg

DRUGS (13)
  1. XOLAIR [Suspect]
     Active Substance: OMALIZUMAB
     Indication: Product used for unknown indication
     Route: 058
     Dates: start: 202405
  2. XOLAIR [Suspect]
     Active Substance: OMALIZUMAB
     Dosage: ADMINISTERED IN HCP OFFICE
     Route: 058
     Dates: start: 2023
  3. BENADRYL [Suspect]
     Active Substance: DIPHENHYDRAMINE HYDROCHLORIDE
     Indication: Product used for unknown indication
     Route: 065
  4. HYDROXYZINE [Concomitant]
     Active Substance: HYDROXYZINE HYDROCHLORIDE
     Indication: Pruritus
     Dosage: TWO IN THE MORNING AND TWO AT NIGHT
  5. HYDROXYZINE [Concomitant]
     Active Substance: HYDROXYZINE HYDROCHLORIDE
     Indication: Urticaria
  6. HYDROXYZINE [Concomitant]
     Active Substance: HYDROXYZINE HYDROCHLORIDE
     Indication: Anxiety
  7. VITAMIN D3 [Concomitant]
     Active Substance: CHOLECALCIFEROL
  8. LORATADINE [Concomitant]
     Active Substance: LORATADINE
  9. FAMOTIDINE [Concomitant]
     Active Substance: FAMOTIDINE
  10. MONTELUKAST [Concomitant]
     Active Substance: MONTELUKAST SODIUM
  11. OMEPRAZOLE [Concomitant]
     Active Substance: OMEPRAZOLE
     Indication: Gastrooesophageal reflux disease
  12. MECLIZINE [Concomitant]
     Active Substance: MECLIZINE HYDROCHLORIDE
     Indication: Dizziness
  13. PREDNISONE [Concomitant]
     Active Substance: PREDNISONE

REACTIONS (13)
  - Malaise [Recovered/Resolved]
  - Pruritus [Unknown]
  - Nervousness [Unknown]
  - Wrong technique in product usage process [Unknown]
  - Thermal burn [Unknown]
  - Urinary tract infection [Not Recovered/Not Resolved]
  - Pain [Unknown]
  - Ill-defined disorder [Unknown]
  - Device malfunction [Unknown]
  - Illness [Unknown]
  - Pruritus [Unknown]
  - Anxiety [Unknown]
  - Panic attack [Unknown]

NARRATIVE: CASE EVENT DATE: 20240611
